FAERS Safety Report 7295336-3 (Version None)
Quarter: 2011Q1

REPORT INFORMATION
  Report Type: 
  Country: None (occurrence: None)
  Receive Date: 20110207
  Receipt Date: 20110127
  Transmission Date: 20110831
  Serious: Yes (Hospitalization, Other)
  Sender: FDA-Public Use
  Company Number: CL-288-2011

PATIENT
  Age: 71 Year
  Sex: Male

DRUGS (2)
  1. AMIODARONE UNK [Suspect]
     Indication: ATRIAL FIBRILLATION
  2. TACROLIMUS [Suspect]
     Indication: IMMUNOSUPPRESSION

REACTIONS (5)
  - TORSADE DE POINTES [None]
  - VENTRICULAR FIBRILLATION [None]
  - DRUG INTERACTION [None]
  - ATRIAL FIBRILLATION [None]
  - BLOOD MAGNESIUM DECREASED [None]
